FAERS Safety Report 8099564-9 (Version None)
Quarter: 2012Q1

REPORT INFORMATION
  Report Type: 
  Country: None (occurrence: None)
  Receive Date: 20120129
  Receipt Date: 20110906
  Transmission Date: 20120608
  Serious: No
  Sender: FDA-Public Use
  Company Number: US-ABBOTT-11P-163-0851927-00

PATIENT
  Sex: Female
  Weight: 57.204 kg

DRUGS (12)
  1. MIRALAX [Concomitant]
     Indication: CONSTIPATION
  2. VITAMIN B-12 [Concomitant]
     Indication: SUPPLEMENTATION THERAPY
  3. METHADONE HCL [Concomitant]
     Indication: PAIN
  4. LACTULOSE [Concomitant]
     Indication: CONSTIPATION
  5. HUMIRA [Suspect]
     Indication: RHEUMATOID ARTHRITIS
     Route: 058
     Dates: start: 20110904, end: 20110904
  6. BISACODYL [Concomitant]
     Indication: CONSTIPATION
  7. PHENERGAN [Concomitant]
     Indication: NAUSEA
  8. NEURONTIN [Concomitant]
     Indication: NEUROPATHY PERIPHERAL
  9. ASPIRIN [Concomitant]
     Indication: CARDIOVASCULAR EVENT PROPHYLAXIS
  10. HUMIRA [Suspect]
     Indication: CROHN'S DISEASE
  11. LEXAPRO [Concomitant]
     Indication: DEPRESSION
  12. XANAX [Concomitant]
     Indication: ANXIETY

REACTIONS (1)
  - INJECTION SITE HAEMORRHAGE [None]
